FAERS Safety Report 6861301-0 (Version None)
Quarter: 2010Q3

REPORT INFORMATION
  Report Type: 
  Country: None (occurrence: None)
  Receive Date: 20100720
  Receipt Date: 20100712
  Transmission Date: 20110219
  Serious: Yes (Other)
  Sender: FDA-Public Use
  Company Number: US-ABBOTT-10P-163-0656890-00

PATIENT
  Sex: Male
  Weight: 99.88 kg

DRUGS (9)
  1. HUMIRA [Suspect]
     Indication: RHEUMATOID ARTHRITIS
     Dates: start: 20080101
  2. TOPAMAX [Suspect]
     Indication: MIGRAINE
     Dates: start: 20100601
  3. ISONIAZID [Suspect]
     Indication: TUBERCULIN TEST POSITIVE
     Dates: start: 20091101
  4. METHOTREXATE [Suspect]
     Indication: RHEUMATOID ARTHRITIS
  5. PLAVIX [Concomitant]
     Indication: BLOOD CHOLESTEROL INCREASED
  6. PROTONIX [Concomitant]
     Indication: PRODUCT USED FOR UNKNOWN INDICATION
  7. ZIAC [Concomitant]
     Indication: HYPERTENSION
  8. FOLIC [Concomitant]
     Indication: PRODUCT USED FOR UNKNOWN INDICATION
  9. ZOCOR [Concomitant]
     Indication: BLOOD CHOLESTEROL INCREASED
     Dates: start: 20090401

REACTIONS (5)
  - CORONARY ARTERY OCCLUSION [None]
  - FATIGUE [None]
  - MIGRAINE [None]
  - NAUSEA [None]
  - TUBERCULIN TEST POSITIVE [None]
